FAERS Safety Report 6237067-4 (Version None)
Quarter: 2009Q2

REPORT INFORMATION
  Report Type: 
  Country: None (occurrence: None)
  Receive Date: 20090619
  Receipt Date: 20090519
  Transmission Date: 20091009
  Serious: No
  Sender: FDA-Public Use
  Company Number: US-ASTRAZENECA-2009UW12986

PATIENT
  Age: 39 Year
  Sex: Male

DRUGS (2)
  1. SYMBICORT [Suspect]
     Indication: COUGH
     Dosage: 160/4.5 UG, 2 PUFFS
     Route: 055
     Dates: start: 20090505
  2. NEXIUM [Suspect]
     Indication: GASTROOESOPHAGEAL REFLUX DISEASE
     Route: 048
     Dates: start: 20090512

REACTIONS (2)
  - APHONIA [None]
  - DYSPHONIA [None]
